FAERS Safety Report 5778841-8 (Version None)
Quarter: 2008Q2

REPORT INFORMATION
  Report Type: 
  Country: None (occurrence: None)
  Receive Date: 20080617
  Receipt Date: 20080606
  Transmission Date: 20081010
  Serious: Yes (Other)
  Sender: FDA-Public Use
  Company Number: S08-USA-00898-01

PATIENT
  Age: 58 Year
  Sex: Female
  Weight: 77.1115 kg

DRUGS (3)
  1. CELEXA [Suspect]
     Indication: DEPRESSION
     Dosage: 20 MG QD PO
     Route: 048
     Dates: start: 20070801, end: 20080201
  2. LEVOTHYROXINE SODIUM [Concomitant]
  3. INDAPAMIDE [Concomitant]

REACTIONS (1)
  - DEAFNESS TRANSITORY [None]
